FAERS Safety Report 12400291 (Version 1)
Quarter: 2016Q2

REPORT INFORMATION
  Report Type: Spontaneous
  Country: US (occurrence: None)
  Receive Date: 20160524
  Receipt Date: 20160524
  Transmission Date: 20160815
  Serious: No
  Sender: FDA-Public Use
  Company Number: None

PATIENT
  Sex: Female

DRUGS (4)
  1. GLIMEPIRIDE. [Suspect]
     Active Substance: GLIMEPIRIDE
  2. LANTUS [Suspect]
     Active Substance: INSULIN GLARGINE
  3. HUMALOG [Suspect]
     Active Substance: INSULIN LISPRO
  4. METFORMIN [Suspect]
     Active Substance: METFORMIN HYDROCHLORIDE

REACTIONS (5)
  - Dehydration [None]
  - Blood glucose decreased [None]
  - Blood pressure abnormal [None]
  - Dizziness [None]
  - Blood glucose increased [None]
